FAERS Safety Report 8431941-6 (Version None)
Quarter: 2012Q2

REPORT INFORMATION
  Report Type: 
  Country: None (occurrence: None)
  Receive Date: 20120613
  Receipt Date: 20111012
  Transmission Date: 20120825
  Serious: No
  Sender: FDA-Public Use
  Company Number: US-ASTRAZENECA-2010SE51246

PATIENT
  Age: 84 Year
  Sex: Female
  Weight: 114.8 kg

DRUGS (26)
  1. CALCIUM [Concomitant]
  2. NITROGLYCERIN [Concomitant]
  3. VOLTAREN [Concomitant]
  4. RHINOCORT [Suspect]
     Dosage: 32 MCG/ACT, 2 SPRAYS, TWICE DAILY
     Route: 045
  5. AMBIEN [Concomitant]
  6. LANTUS [Concomitant]
  7. AVAPRO [Concomitant]
  8. NEXIUM [Suspect]
     Route: 048
  9. MECLIZINE [Concomitant]
  10. DORZOLAMIDE [Concomitant]
  11. RHINOCORT [Suspect]
     Dosage: TWO SPRAYS,DAILY
     Route: 045
  12. HUMALOG [Concomitant]
  13. LASIX [Concomitant]
  14. ADVAIR DISKUS 100/50 [Concomitant]
  15. BENAZEPRIL HYDROCHLORIDE [Concomitant]
  16. RHINOCORT [Suspect]
     Dosage: ONE SPRAY, DAILY
     Route: 045
  17. LYRICA [Concomitant]
  18. ALLEGRA [Concomitant]
  19. ALBUTEROL [Concomitant]
  20. IMDUR [Concomitant]
  21. VITAMIN B COMPLEX CAP [Concomitant]
  22. ASPIRIN [Concomitant]
  23. SALINE MIST [Concomitant]
  24. SYNTHROID [Concomitant]
  25. METOPROLOL [Concomitant]
  26. COZAAR [Concomitant]

REACTIONS (4)
  - OEDEMA [None]
  - BACK PAIN [None]
  - ARTHRALGIA [None]
  - DRUG INEFFECTIVE [None]
